FAERS Safety Report 5708191-7 (Version None)
Quarter: 2008Q2

REPORT INFORMATION
  Report Type: 
  Country: None (occurrence: None)
  Receive Date: 20080417
  Receipt Date: 20080411
  Transmission Date: 20081010
  Serious: Yes (Other)
  Sender: FDA-Public Use
  Company Number: SG-RB-000764-08

PATIENT
  Age: 29 Year
  Sex: Male

DRUGS (1)
  1. SUBUTEX [Suspect]
     Indication: DRUG USE FOR UNKNOWN INDICATION
     Dosage: DOSAGE UNKNOWN
     Route: 065

REACTIONS (9)
  - HAND DEFORMITY [None]
  - INCORRECT ROUTE OF DRUG ADMINISTRATION [None]
  - MUSCLE ATROPHY [None]
  - MUSCULAR WEAKNESS [None]
  - PERIPHERAL NERVE INJURY [None]
  - SOFT TISSUE DISORDER [None]
  - SUBSTANCE ABUSE [None]
  - SWELLING [None]
  - ULNAR NERVE INJURY [None]
